FAERS Safety Report 20041382 (Version 6)
Quarter: 2022Q1

REPORT INFORMATION
  Report Type: Spontaneous
  Country: None (occurrence: GB)
  Receive Date: 20211107
  Receipt Date: 20220130
  Transmission Date: 20220424
  Serious: Yes (Life-Threatening, Other)
  Sender: FDA-Public Use
  Company Number: GB-Ascend Therapeutics US, LLC-2121557

PATIENT
  Age: 48 Year
  Sex: Female

DRUGS (12)
  1. ESTROGEL [Suspect]
     Active Substance: ESTRADIOL
     Indication: Menopause
     Route: 065
  2. ESTROGEL [Suspect]
     Active Substance: ESTRADIOL
  3. ESTRADIOL [Suspect]
     Active Substance: ESTRADIOL
     Route: 065
  4. NORETHINDRONE ACETATE [Suspect]
     Active Substance: NORETHINDRONE ACETATE
     Route: 065
  5. ESTRADIOL\NORETHINDRONE ACETATE [Suspect]
     Active Substance: ESTRADIOL\NORETHINDRONE ACETATE
     Route: 065
  6. ESTRADIOL [Suspect]
     Active Substance: ESTRADIOL
     Route: 062
  7. MIRENA [Suspect]
     Active Substance: LEVONORGESTREL
     Route: 065
  8. SUMATRIPTAN [Concomitant]
     Active Substance: SUMATRIPTAN
     Route: 065
  9. Amytriptaline(AMITRIPTYLINE) [Concomitant]
     Route: 065
  10. ESTRADIOL [Suspect]
     Active Substance: ESTRADIOL
     Route: 065
  11. ESTRADIOL [Suspect]
     Active Substance: ESTRADIOL
     Route: 062
  12. NORETHINDRONE [Suspect]
     Active Substance: NORETHINDRONE
     Route: 065

REACTIONS (9)
  - Suicidal ideation [Unknown]
  - Depression suicidal [Unknown]
  - Myalgia [Unknown]
  - Arthralgia [Unknown]
  - Product quality issue [Unknown]
  - Medication error [Unknown]
  - Wrong technique in product usage process [Unknown]
  - Off label use [Unknown]
  - Product supply issue [Unknown]

NARRATIVE: CASE EVENT DATE: 20200512
